FAERS Safety Report 4630868-5 (Version None)
Quarter: 2005Q2

REPORT INFORMATION
  Report Type: 
  Country: None (occurrence: None)
  Receive Date: 20050408
  Receipt Date: 20050331
  Transmission Date: 20051028
  Serious: Yes (Other)
  Sender: FDA-Public Use
  Company Number: DE-ABBOTT-05P-062-0295732-00

PATIENT
  Sex: Male

DRUGS (3)
  1. CLARITHROMYCIN [Suspect]
     Indication: BACTERIAL INFECTION
  2. PANTOPRAZOLE SODIUM [Suspect]
     Indication: BACTERIAL INFECTION
  3. AMOXICILLIN TRIHYDRATE [Suspect]
     Indication: BACTERIAL INFECTION

REACTIONS (2)
  - DYSPNOEA [None]
  - HEART RATE INCREASED [None]
